FAERS Safety Report 5807120-5 (Version None)
Quarter: 2008Q3

REPORT INFORMATION
  Report Type: 
  Country: None (occurrence: None)
  Receive Date: 20080709
  Receipt Date: 20080709
  Transmission Date: 20090109
  Serious: Yes (Life-Threatening, Other)
  Sender: FDA-Public Use
  Company Number: None

PATIENT
  Age: 47 Year
  Sex: Female
  Weight: 58.9676 kg

DRUGS (1)
  1. ADDERALL 20 [Suspect]
     Indication: ATTENTION DEFICIT/HYPERACTIVITY DISORDER
     Dosage: 1 TAB 20 MG 3XDAY PO
     Route: 048
     Dates: start: 20080306, end: 20080706

REACTIONS (25)
  - ABDOMINAL PAIN [None]
  - AGGRESSION [None]
  - ANOREXIA [None]
  - DEHYDRATION [None]
  - DELUSION [None]
  - DEPRESSION [None]
  - EAR INFECTION [None]
  - HEART RATE INCREASED [None]
  - HOSTILITY [None]
  - HYPERHIDROSIS [None]
  - INSOMNIA [None]
  - KIDNEY INFECTION [None]
  - MOBILITY DECREASED [None]
  - MUSCLE SPASMS [None]
  - MUSCLE TWITCHING [None]
  - NAUSEA [None]
  - PANIC ATTACK [None]
  - PARANOIA [None]
  - PHARYNGITIS [None]
  - RESTLESSNESS [None]
  - TOOTH DISCOLOURATION [None]
  - TREMOR [None]
  - UVEITIS [None]
  - VISION BLURRED [None]
  - WEIGHT DECREASED [None]
